FAERS Safety Report 5657108-2 (Version None)
Quarter: 2008Q1

REPORT INFORMATION
  Report Type: 
  Country: None (occurrence: None)
  Receive Date: 20080310
  Receipt Date: 20080228
  Transmission Date: 20080703
  Serious: Yes (Death, Other)
  Sender: FDA-Public Use
  Company Number: CA-ROCHE-550513

PATIENT
  Age: 50 Year
  Sex: Male
  Weight: 61 kg

DRUGS (9)
  1. PEGASYS [Suspect]
     Indication: HEPATITIS C
     Route: 058
     Dates: start: 20080205, end: 20080201
  2. COTAZYM [Concomitant]
     Route: 048
  3. METOPROLOL TARTRATE [Concomitant]
  4. AMLODIPINE [Concomitant]
  5. FUROSEMIDE [Concomitant]
  6. PANTOPRAZOLE [Concomitant]
  7. RENAGEL [Concomitant]
  8. ZINC [Concomitant]
  9. REPLAVITE [Concomitant]
     Dosage: FREQUENCY^ EVERY 2 DAY (Q2D). DRUG REPORTED AS REPLIVITE.

REACTIONS (2)
  - DEATH [None]
  - LIVER FUNCTION TEST ABNORMAL [None]
